FAERS Safety Report 9322127 (Version 1)
Quarter: 2013Q2

REPORT INFORMATION
  Report Type: Spontaneous
  Country: US (occurrence: US)
  Receive Date: 20130531
  Receipt Date: 20130531
  Transmission Date: 20140414
  Serious: Yes (Other)
  Sender: FDA-Public Use
  Company Number: US-PFIZER INC-2013165145

PATIENT
  Age: 55 Year
  Sex: Female
  Weight: 68.03 kg

DRUGS (1)
  1. LYRICA [Suspect]
     Indication: FIBROMYALGIA
     Dosage: UNK
     Route: 048
     Dates: start: 2011

REACTIONS (1)
  - Weight increased [Unknown]
